FAERS Safety Report 9725994 (Version 1)
Quarter: 2013Q4

REPORT INFORMATION
  Report Type: Spontaneous
  Country: US (occurrence: None)
  Receive Date: 20131202
  Receipt Date: 20131202
  Transmission Date: 20140711
  Serious: No
  Sender: FDA-Public Use
  Company Number: None

PATIENT
  Age: 66 Year
  Sex: Female

DRUGS (4)
  1. SIMPONI [Suspect]
     Route: 058
  2. VITAMIN D [Concomitant]
  3. IBUPROPFEN [Concomitant]
  4. LISINOPRIL [Concomitant]

REACTIONS (1)
  - Dermatitis psoriasiform [None]
